FAERS Safety Report 20743204 (Version 3)
Quarter: 2022Q2

REPORT INFORMATION
  Report Type: Spontaneous
  Country: JP (occurrence: JP)
  Receive Date: 20220425
  Receipt Date: 20220512
  Transmission Date: 20220721
  Serious: Yes (Hospitalization)
  Sender: FDA-Public Use
  Company Number: JP-MTPC-MTPC2022-0010195

PATIENT

DRUGS (1)
  1. EDARAVONE [Suspect]
     Active Substance: EDARAVONE
     Route: 041

REACTIONS (1)
  - Rehabilitation therapy [Unknown]
